FAERS Safety Report 13782798 (Version 1)
Quarter: 2017Q3

REPORT INFORMATION
  Report Type: Report from Study
  Country: US (occurrence: US)
  Receive Date: 20170724
  Receipt Date: 20170724
  Transmission Date: 20171127
  Serious: Yes (Other)
  Sender: FDA-Public Use
  Company Number: US-IPSEN BIOPHARMACEUTICALS, INC.-2016-09816

PATIENT
  Sex: Female
  Weight: 97 kg

DRUGS (2)
  1. SOMATULINE [Suspect]
     Active Substance: LANREOTIDE ACETATE
     Indication: CARCINOID SYNDROME
     Dosage: 120 MG
     Route: 058
     Dates: start: 201601
  2. XANAX [Concomitant]
     Active Substance: ALPRAZOLAM

REACTIONS (4)
  - Neoplasm progression [Unknown]
  - Drug ineffective [Unknown]
  - Hepatic neoplasm [Unknown]
  - Neoplasm [Unknown]

NARRATIVE: CASE EVENT DATE: 2016
